FAERS Safety Report 8935883 (Version 1)
Quarter: 2012Q4

REPORT INFORMATION
  Report Type: Report from Study
  Country: JP (occurrence: JP)
  Receive Date: 20121130
  Receipt Date: 20121130
  Transmission Date: 20130627
  Serious: Yes (Hospitalization, Other)
  Sender: FDA-Public Use
  Company Number: JP-TEVA-2011000660

PATIENT
  Age: 71 Year
  Sex: Female
  Weight: 82.6 kg

DRUGS (16)
  1. BENDAMUSTINE HCL [Suspect]
     Indication: B-CELL LYMPHOMA
     Route: 042
     Dates: start: 20110113, end: 20110114
  2. BENDAMUSTINE HCL [Suspect]
     Route: 042
     Dates: start: 20110203, end: 20110204
  3. BENDAMUSTINE HCL [Suspect]
     Route: 042
     Dates: start: 20110224, end: 20110225
  4. BENDAMUSTINE HCL [Suspect]
     Route: 042
     Dates: start: 20110331, end: 20110401
  5. BENDAMUSTINE HCL [Suspect]
     Route: 042
     Dates: start: 20110421, end: 20110422
  6. BENDAMUSTINE HCL [Suspect]
     Route: 042
     Dates: start: 20110512, end: 20110513
  7. SULFAMETHOXAZOLE W/TRIMETHOPRIM [Suspect]
     Indication: ANTIFUNGAL PROPHYLAXIS
     Route: 048
     Dates: start: 20110111
  8. PALONOSETRON [Concomitant]
     Route: 042
     Dates: start: 20110113, end: 20110512
  9. FAMOTIDINE [Concomitant]
     Dates: start: 20110111
  10. ALLOPURINOL [Concomitant]
     Dates: start: 20090610
  11. AMLODIPINE BESILATE [Concomitant]
     Dates: start: 20090610
  12. POTASSIUM CITRATE W/SODIUM CITRATE [Concomitant]
     Dates: start: 20110111
  13. PRAVASTATIN SODIUM [Concomitant]
     Dates: start: 20110111
  14. DEQUALINIUM CHLORIDE [Concomitant]
     Dates: start: 20110210, end: 20110509
  15. SENNOSIDE A AND B [Concomitant]
     Dates: start: 20110413, end: 20110516
  16. HYDROCORTISONE SODIUM SUCCINATE [Concomitant]
     Dates: start: 20110224, end: 20110513

REACTIONS (3)
  - Pancytopenia [Recovering/Resolving]
  - Lymphocyte count decreased [Recovering/Resolving]
  - Pyrexia [Recovered/Resolved]
